FAERS Safety Report 7849805-5 (Version None)
Quarter: 2011Q4

REPORT INFORMATION
  Report Type: 
  Country: None (occurrence: None)
  Receive Date: 20111025
  Receipt Date: 20111025
  Transmission Date: 20120403
  Serious: Yes (Hospitalization)
  Sender: FDA-Public Use
  Company Number: None

PATIENT
  Sex: Female
  Weight: 71.4 kg

DRUGS (2)
  1. TAXOL [Suspect]
     Dosage: 130 MG
     Dates: end: 20111004
  2. CARBOPLATIN [Suspect]
     Dosage: 440 MG
     Dates: end: 20111004

REACTIONS (2)
  - ANAEMIA [None]
  - HYPONATRAEMIA [None]
